FAERS Safety Report 23437939 (Version 1)
Quarter: 2024Q1

REPORT INFORMATION
  Report Type: Other
  Country: US (occurrence: US)
  Receive Date: 20240124
  Receipt Date: 20240124
  Transmission Date: 20240409
  Serious: Yes (Other)
  Sender: FDA-Public Use
  Company Number: US-Bion-012534

PATIENT
  Age: 7 Decade
  Sex: Male

DRUGS (3)
  1. CALCITRIOL [Suspect]
     Active Substance: CALCITRIOL
     Indication: Hungry bone syndrome
  2. ERGOCALCIFEROL [Suspect]
     Active Substance: ERGOCALCIFEROL
     Indication: Hungry bone syndrome
  3. CALCIUM [Concomitant]
     Active Substance: CALCIUM
     Indication: Hungry bone syndrome

REACTIONS (3)
  - Acute kidney injury [Unknown]
  - Hypercalcaemia [Unknown]
  - Drug ineffective for unapproved indication [Not Recovered/Not Resolved]
